FAERS Safety Report 5698758-7 (Version None)
Quarter: 2008Q2

REPORT INFORMATION
  Report Type: 
  Country: None (occurrence: None)
  Receive Date: 20080403
  Receipt Date: 20080321
  Transmission Date: 20081010
  Serious: Yes (Death)
  Sender: FDA-Public Use
  Company Number: 2008000488

PATIENT
  Age: 58 Year
  Sex: Male

DRUGS (4)
  1. ERLOTINIB / PLACEBO (ERLOTINIB HCL) (ERLOTINIB HCL) [Suspect]
     Indication: NON-SMALL CELL LUNG CANCER
     Dates: start: 20071224
  2. ORAMORPH SR [Concomitant]
  3. MIRTAZAPINE [Concomitant]
  4. LORAZEPAM [Concomitant]

REACTIONS (2)
  - DISEASE PROGRESSION [None]
  - NON-SMALL CELL LUNG CANCER [None]
